FAERS Safety Report 8577487-6 (Version None)
Quarter: 2012Q3

REPORT INFORMATION
  Report Type: 
  Country: None (occurrence: None)
  Receive Date: 20120807
  Receipt Date: 20120803
  Transmission Date: 20120928
  Serious: Yes (Other)
  Sender: FDA-Public Use
  Company Number: GB-PFIZER INC-2012190327

PATIENT
  Sex: Male

DRUGS (1)
  1. VARENICLINE [Suspect]
     Dosage: UNK
     Dates: end: 20120101

REACTIONS (1)
  - JOINT INJURY [None]
